FAERS Safety Report 6999865-9 (Version None)
Quarter: 2010Q3

REPORT INFORMATION
  Report Type: 
  Country: None (occurrence: None)
  Receive Date: 20100920
  Receipt Date: 20070716
  Transmission Date: 20110219
  Serious: Yes (Other)
  Sender: FDA-Public Use
  Company Number: US-ASTRAZENECA-2006UW26715

PATIENT
  Age: 593 Month
  Sex: Male
  Weight: 143.3 kg

DRUGS (10)
  1. SEROQUEL [Suspect]
     Indication: DEPRESSION
     Route: 048
     Dates: start: 20000101
  2. SEROQUEL [Suspect]
     Dosage: 100MG -200MG
     Route: 048
     Dates: start: 20030101
  3. ZOLOFT [Concomitant]
  4. CLONAPAM [Concomitant]
  5. ATENOLOL [Concomitant]
     Route: 048
     Dates: start: 20030101
  6. BUSPAR [Concomitant]
     Indication: ANXIETY
     Route: 048
     Dates: start: 20030101
  7. AMBIEN [Concomitant]
     Indication: SLEEP DISORDER
     Dosage: 10MG -50MG
     Route: 048
     Dates: start: 20030201
  8. GLYBURIDE [Concomitant]
     Indication: DIABETES MELLITUS
     Route: 048
     Dates: start: 20030101
  9. NORVASC [Concomitant]
     Indication: HYPERTENSION
     Route: 048
     Dates: start: 20030101
  10. PROTONIX [Concomitant]
     Indication: GASTROOESOPHAGEAL REFLUX DISEASE
     Dosage: 100MG -200MG
     Route: 048
     Dates: start: 20030101

REACTIONS (3)
  - DIABETES MELLITUS [None]
  - DIABETIC KETOACIDOSIS [None]
  - TYPE 2 DIABETES MELLITUS [None]
